FAERS Safety Report 4595398-8 (Version None)
Quarter: 2005Q1

REPORT INFORMATION
  Report Type: 
  Country: None (occurrence: None)
  Receive Date: 20050224
  Receipt Date: 20050209
  Transmission Date: 20050727
  Serious: Yes (Hospitalization)
  Sender: FDA-Public Use
  Company Number: USA050290305

PATIENT
  Age: 54 Year
  Sex: Female

DRUGS (1)
  1. ILETIN II [Suspect]
     Dosage: 35 U/ 1 IN THE MORNING

REACTIONS (1)
  - WOUND DEBRIDEMENT [None]
